FAERS Safety Report 9697466 (Version 2)
Quarter: 2013Q4

REPORT INFORMATION
  Report Type: Report from Study
  Country: JP (occurrence: JP)
  Receive Date: 20131120
  Receipt Date: 20131120
  Transmission Date: 20140711
  Serious: Yes (Hospitalization)
  Sender: FDA-Public Use
  Company Number: PHHY2012JP102987

PATIENT
  Age: 41 Year
  Sex: Male
  Weight: 64 kg

DRUGS (9)
  1. FTY 720 [Suspect]
     Indication: RELAPSING-REMITTING MULTIPLE SCLEROSIS
     Dosage: 0.5 MG, QD
     Route: 048
     Dates: start: 20120417, end: 201208
  2. FTY 720 [Suspect]
     Dosage: 0.5 MG QD
     Route: 048
     Dates: start: 20120925, end: 201211
  3. FTY 720 [Suspect]
     Dosage: 0.5 MG QD
     Route: 048
     Dates: start: 201211
  4. PRIDOL [Concomitant]
     Indication: RELAPSING-REMITTING MULTIPLE SCLEROSIS
     Dosage: 1000 MG, UNK
     Dates: start: 20110728, end: 20120401
  5. GOODMIN [Concomitant]
     Indication: INSOMNIA
     Route: 048
     Dates: start: 20110506
  6. LOXOPROFEN [Concomitant]
     Indication: BACK PAIN
     Dosage: 180 MG, UNK
     Route: 048
     Dates: start: 20120529, end: 20120604
  7. PREDNISOLONE [Concomitant]
     Indication: RELAPSING-REMITTING MULTIPLE SCLEROSIS
     Dosage: 50 MG, UNK
     Route: 048
     Dates: start: 20121106, end: 20121111
  8. NEXIUM//ESOMEPRAZOLE MAGNESIUM [Concomitant]
     Dosage: 20 MG, UNK
     Route: 048
     Dates: start: 20121105, end: 20121111
  9. ONEALFA [Concomitant]
     Dosage: 0.5 UG, UNK
     Route: 048
     Dates: start: 20121105, end: 20121111

REACTIONS (6)
  - Chest pain [Recovered/Resolved]
  - Liver function test abnormal [Recovered/Resolved]
  - Alanine aminotransferase increased [Recovering/Resolving]
  - Aspartate aminotransferase increased [Recovering/Resolving]
  - Gamma-glutamyltransferase increased [Recovering/Resolving]
  - Lymphocyte count decreased [Recovering/Resolving]
